FAERS Safety Report 8877807 (Version 2)
Quarter: 2012Q4

REPORT INFORMATION
  Report Type: 
  Country: US (occurrence: US)
  Receive Date: 20121025
  Receipt Date: 20121108
  Transmission Date: 20130627
  Serious: Yes (Hospitalization)
  Sender: FDA-Public Use
  Company Number: US-009507513-1210USA009700

PATIENT
  Age: 49 Year
  Sex: Female

DRUGS (3)
  1. TEMODAR [Suspect]
     Indication: BRAIN NEOPLASM
     Dosage: 100 mg, qd
     Route: 048
     Dates: start: 20121008
  2. TEMODAR [Suspect]
     Indication: BRAIN NEOPLASM
     Dosage: UNK UNK, qd
     Route: 048
     Dates: start: 20121008
  3. ZOFRAN [Concomitant]

REACTIONS (1)
  - Thrombosis [Recovering/Resolving]
